FAERS Safety Report 15812867 (Version 1)
Quarter: 2019Q1

REPORT INFORMATION
  Report Type: Spontaneous
  Country: US (occurrence: US)
  Receive Date: 20190111
  Receipt Date: 20190111
  Transmission Date: 20190417
  Serious: No
  Sender: FDA-Public Use
  Company Number: US-BAYER-2019-007956

PATIENT
  Sex: Female

DRUGS (1)
  1. GENERIC PMS STUDY FOR INTERFERON BETA - 1B (250?G) [Suspect]
     Active Substance: INTERFERON BETA-1B
     Indication: MULTIPLE SCLEROSIS
     Dosage: 0.25 MG, QOD
     Dates: start: 20131023

REACTIONS (1)
  - Product dose omission [None]
